FAERS Safety Report 8800475 (Version 1)
Quarter: 2012Q4

REPORT INFORMATION
  Report Type: 
  Country: US (occurrence: US)
  Receive Date: 20120921
  Receipt Date: 20120921
  Transmission Date: 20130627
  Serious: No
  Sender: FDA-Public Use
  Company Number: US-B.I. PHARMACEUTICALS,INC./RIDGEFIELD-2012-BP-22721BP

PATIENT
  Age: 56 Year
  Sex: Female
  Weight: 59 kg

DRUGS (3)
  1. SPIRIVA [Suspect]
     Indication: CHRONIC OBSTRUCTIVE PULMONARY DISEASE
     Dosage: 18 mcg
     Route: 055
     Dates: start: 2008
  2. SPIRIVA [Suspect]
     Route: 048
     Dates: start: 20120913, end: 20120913
  3. CELEXA [Concomitant]
     Indication: ANTIDEPRESSANT THERAPY
     Dosage: 20 mg
     Route: 048
     Dates: start: 2002

REACTIONS (2)
  - Incorrect route of drug administration [Recovered/Resolved]
  - Product quality issue [Recovered/Resolved]
